FAERS Safety Report 21006493 (Version 2)
Quarter: 2022Q3

REPORT INFORMATION
  Report Type: Spontaneous
  Country: JP (occurrence: JP)
  Receive Date: 20220624
  Receipt Date: 20220714
  Transmission Date: 20221027
  Serious: No
  Sender: FDA-Public Use
  Company Number: JP-Eisai-202202899_DVG_P_1

PATIENT
  Age: 80 Year
  Sex: Female

DRUGS (12)
  1. DAYVIGO [Interacting]
     Active Substance: LEMBOREXANT
     Indication: Insomnia
     Route: 048
     Dates: start: 20220527, end: 20220530
  2. DAYVIGO [Interacting]
     Active Substance: LEMBOREXANT
     Route: 048
     Dates: start: 20220608, end: 20220615
  3. ERYTHROCIN [Interacting]
     Active Substance: ERYTHROMYCIN LACTOBIONATE
     Indication: Product used for unknown indication
     Dosage: DOSE AND FREQUENCY UNKNOWN
     Route: 065
  4. RABEPRAZOLE SODIUM [Concomitant]
     Active Substance: RABEPRAZOLE SODIUM
     Indication: Product used for unknown indication
     Dosage: DOSE AND FREQUENCY UNKNOWN
     Route: 048
  5. AMBROXOL HYDROCHLORIDE [Concomitant]
     Active Substance: AMBROXOL HYDROCHLORIDE
     Indication: Product used for unknown indication
     Dosage: DOSE AND FREQUENCY UNKNOWN
     Route: 065
  6. OLODATEROL HYDROCHLORIDE\TIOTROPIUM BROMIDE MONOHYDRATE [Concomitant]
     Active Substance: OLODATEROL HYDROCHLORIDE\TIOTROPIUM BROMIDE MONOHYDRATE
     Indication: Product used for unknown indication
     Dosage: DOSE AND FREQUENCY UNKNOWN
     Route: 065
  7. PREDONINE [Concomitant]
     Active Substance: PREDNISOLONE
     Indication: Product used for unknown indication
     Dosage: DOSE AND FREQUENCY UNKNOWN
     Route: 065
  8. ROCALTROL [Concomitant]
     Active Substance: CALCITRIOL
     Indication: Product used for unknown indication
     Dosage: DOSE AND FREQUENCY UNKNOWN
     Route: 065
  9. SULFAMETHOXAZOLE\TRIMETHOPRIM [Concomitant]
     Active Substance: SULFAMETHOXAZOLE\TRIMETHOPRIM
     Indication: Product used for unknown indication
     Dosage: DOSE AND FREQUENCY UNKNOWN
     Route: 065
  10. ATORVASTATIN [Concomitant]
     Active Substance: ATORVASTATIN
     Indication: Product used for unknown indication
     Dosage: DOSE AND FREQUENCY UNKNOWN
     Route: 065
  11. AZILSARTAN KAMEDOXOMIL [Concomitant]
     Active Substance: AZILSARTAN KAMEDOXOMIL
     Indication: Product used for unknown indication
     Dosage: DOSE AND FREQUENCY UNKNOWN
     Route: 065
  12. DONEPEZIL HYDROCHLORIDE [Concomitant]
     Active Substance: DONEPEZIL HYDROCHLORIDE
     Indication: Product used for unknown indication
     Route: 065

REACTIONS (2)
  - Somnolence [Unknown]
  - Drug interaction [Unknown]

NARRATIVE: CASE EVENT DATE: 20220528
